FAERS Safety Report 10058386 (Version 2)
Quarter: 2014Q2

REPORT INFORMATION
  Report Type: Spontaneous
  Country: IT (occurrence: IT)
  Receive Date: 20140404
  Receipt Date: 20140526
  Transmission Date: 20141212
  Serious: Yes (Other)
  Sender: FDA-Public Use
  Company Number: IT-ACCORD-022814

PATIENT
  Age: 45 Year
  Sex: Female
  Weight: 49 kg

DRUGS (4)
  1. FLUOROURACILE AHCL [Suspect]
     Indication: COLON CANCER
     Dosage: MAH: ACCORD
     Route: 042
     Dates: start: 20130430, end: 20140221
  2. PREFOLIC [Concomitant]
     Dosage: MAH: ZAMBON
  3. OXALIPLATINO SUN [Suspect]
     Indication: COLON CANCER
     Dosage: MAH: SUN
     Route: 042
     Dates: start: 20130430, end: 20140221
  4. AVASTIN [Suspect]
     Indication: COLON CANCER
     Dosage: MAH: ROCHE
     Route: 042
     Dates: start: 20130518, end: 20140219

REACTIONS (2)
  - Chest pain [Recovered/Resolved]
  - Pericardial effusion [Recovered/Resolved]
